FAERS Safety Report 4749288-8 (Version None)
Quarter: 2005Q3

REPORT INFORMATION
  Report Type: 
  Country: None (occurrence: None)
  Receive Date: 20050812
  Receipt Date: 20050517
  Transmission Date: 20060218
  Serious: Yes (Other)
  Sender: FDA-Public Use
  Company Number: 405150

PATIENT
  Age: 47 Year
  Sex: Male

DRUGS (4)
  1. PEGASYS [Suspect]
     Indication: DISEASE RECURRENCE
     Dosage: 180 MCG 1 PER WEEK SUBCUTANEOUS
     Route: 058
     Dates: start: 20050405
  2. PEGASYS [Suspect]
     Indication: HEPATITIS C
     Dosage: 180 MCG 1 PER WEEK SUBCUTANEOUS
     Route: 058
     Dates: start: 20050405
  3. COPEGUS [Suspect]
     Indication: DISEASE RECURRENCE
     Dosage: 5 DOSE FORM DAILY ORAL
     Route: 048
     Dates: start: 20050405
  4. COPEGUS [Suspect]
     Indication: HEPATITIS C
     Dosage: 5 DOSE FORM DAILY ORAL
     Route: 048
     Dates: start: 20050405

REACTIONS (1)
  - PLATELET COUNT DECREASED [None]
